FAERS Safety Report 16599303 (Version 2)
Quarter: 2019Q3

REPORT INFORMATION
  Report Type: Report from Study
  Country: US (occurrence: US)
  Receive Date: 20190719
  Receipt Date: 20190903
  Transmission Date: 20191004
  Serious: Yes (Other)
  Sender: FDA-Public Use
  Company Number: PHEH2019US029931

PATIENT
  Sex: Male

DRUGS (1)
  1. ENTRESTO [Suspect]
     Active Substance: SACUBITRIL\VALSARTAN
     Indication: CARDIAC FAILURE
     Dosage: UNK
     Route: 048

REACTIONS (6)
  - Diabetes mellitus [Recovering/Resolving]
  - Fluid retention [Unknown]
  - Blood pressure abnormal [Recovering/Resolving]
  - Constipation [Unknown]
  - Blood potassium increased [Unknown]
  - Fatigue [Unknown]
